FAERS Safety Report 22250585 (Version 1)
Quarter: 2023Q2

REPORT INFORMATION
  Report Type: Spontaneous
  Country: CN (occurrence: CN)
  Receive Date: 20230425
  Receipt Date: 20230425
  Transmission Date: 20230721
  Serious: Yes (Other)
  Sender: FDA-Public Use
  Company Number: None

PATIENT
  Age: 74 Year
  Sex: Male
  Weight: 55 kg

DRUGS (4)
  1. CYCLOPHOSPHAMIDE [Suspect]
     Active Substance: CYCLOPHOSPHAMIDE
     Indication: Diffuse large B-cell lymphoma
     Dosage: 1 G, QD, DILUTED WITH NORMAL SALINE (NS) 100ML
     Route: 041
     Dates: start: 20230323, end: 20230323
  2. SODIUM CHLORIDE [Suspect]
     Active Substance: SODIUM CHLORIDE
     Indication: Medication dilution
     Dosage: 100 ML, QD, USED TO DILUTE CYCLOPHOSPHAMIDE 1G
     Route: 041
     Dates: start: 20230323, end: 20230323
  3. SODIUM CHLORIDE [Suspect]
     Active Substance: SODIUM CHLORIDE
     Dosage: 600 ML, QD, USED TO DILUTE RITUXIMAB 600MG
     Route: 041
     Dates: start: 20230322, end: 20230322
  4. RITUXIMAB [Suspect]
     Active Substance: RITUXIMAB
     Indication: Diffuse large B-cell lymphoma
     Dosage: 600 MG, QD, DILUTED WITH NS 600ML
     Route: 041
     Dates: start: 20230322, end: 20230322

REACTIONS (2)
  - Myelosuppression [Recovering/Resolving]
  - Full blood count decreased [Recovering/Resolving]

NARRATIVE: CASE EVENT DATE: 20230404
